FAERS Safety Report 8442373 (Version 3)
Quarter: 2012Q4

REPORT INFORMATION
  Report Type: 
  Country: US (occurrence: US)
  Receive Date: 20120306
  Receipt Date: 20120913
  Transmission Date: 20130627
  Serious: Yes (Hospitalization, Other)
  Sender: FDA-Public Use
  Company Number: US-BAYER-2012-018150

PATIENT
  Age: 29 Year
  Sex: Female
  Weight: 66 kg

DRUGS (8)
  1. YAZ [Suspect]
     Indication: ENDOMETRIOSIS
     Dosage: UNK
     Dates: start: 2009, end: 2012
  2. YASMIN [Suspect]
     Indication: ENDOMETRIOSIS
     Dosage: UNK
     Dates: start: 200901, end: 2012
  3. OCELLA [Suspect]
     Indication: ENDOMETRIOSIS
     Dosage: UNK
     Dates: start: 2009, end: 2012
  4. IBUPROFEN [Concomitant]
     Dosage: UNK
     Route: 048
     Dates: start: 2009, end: 2012
  5. LYRICA [Concomitant]
     Dosage: 75 mg, UNK
     Route: 048
     Dates: start: 2009, end: 2012
  6. ASPIRIN [Concomitant]
     Dosage: 81 mg, UNK
     Route: 048
     Dates: start: 20111015
  7. FLONASE [Concomitant]
     Dosage: UNK
     Dates: start: 20110924
  8. LOESTRIN [Concomitant]
     Dosage: UNK
     Dates: start: 20100114

REACTIONS (13)
  - Deep vein thrombosis [None]
  - Thrombophlebitis superficial [None]
  - Chest pain [None]
  - Anxiety [None]
  - Anxiety [None]
  - Injury [None]
  - Pain [None]
  - Pain in extremity [None]
  - Abdominal pain upper [None]
  - Fear [None]
  - Nervousness [None]
  - Anxiety [None]
  - Gallbladder polyp [None]
